FAERS Safety Report 7569427-3 (Version None)
Quarter: 2011Q2

REPORT INFORMATION
  Report Type: 
  Country: None (occurrence: None)
  Receive Date: 20110624
  Receipt Date: 20110615
  Transmission Date: 20111010
  Serious: Yes (Hospitalization)
  Sender: FDA-Public Use
  Company Number: US-PAR PHARMACEUTICAL, INC-2011SCPR003068

PATIENT

DRUGS (9)
  1. BENZTROPINE MESYLATE [Suspect]
     Indication: PROPHYLAXIS
     Dosage: 1 MG, TID
     Route: 048
  2. VALPROIC ACID [Suspect]
     Indication: SCHIZOPHRENIA
     Dosage: 1500 MG, EVERY NIGHT AT BEDTIME
     Route: 048
  3. RISPERIDONE [Suspect]
     Dosage: 4 MG, BID
     Route: 048
  4. BENZTROPINE MESYLATE [Suspect]
     Dosage: 0.5 MG, BID
     Route: 048
  5. RISPERIDONE [Suspect]
     Indication: SCHIZOPHRENIA
     Dosage: 4 MG, TID
     Route: 048
  6. OLANZAPINE [Suspect]
     Indication: SCHIZOPHRENIA
     Dosage: 20 MG, BID
     Route: 048
  7. HALOPERIDOL [Suspect]
     Indication: SCHIZOPHRENIA
     Dosage: 5-MG DOSES AS NEEDED FOR EXTREME AGITATION
     Route: 065
  8. LITHIUM CARBONATE [Suspect]
     Indication: SCHIZOPHRENIA
     Dosage: 600 MG, BID
     Route: 048
  9. PERPHENAZINE [Suspect]
     Indication: SCHIZOPHRENIA
     Dosage: 16 MG, TID
     Route: 048

REACTIONS (1)
  - ILEUS PARALYTIC [None]
